FAERS Safety Report 7662143-9 (Version None)
Quarter: 2011Q3

REPORT INFORMATION
  Report Type: 
  Country: None (occurrence: None)
  Receive Date: 20110805
  Receipt Date: 20101201
  Transmission Date: 20111222
  Serious: No
  Sender: FDA-Public Use
  Company Number: US-ABBOTT-10P-163-0689277-00

PATIENT
  Sex: Male
  Weight: 72.64 kg

DRUGS (15)
  1. PRAVASTATIN [Concomitant]
     Indication: BLOOD CHOLESTEROL INCREASED
  2. LOVAZA [Concomitant]
     Indication: SUPPLEMENTATION THERAPY
  3. FOLBE [Concomitant]
     Indication: VITAMIN SUPPLEMENTATION
  4. CALCIUM ACETATE [Concomitant]
     Indication: MINERAL SUPPLEMENTATION
  5. PLAVIX [Concomitant]
     Indication: STENT PLACEMENT
  6. ZANTAC [Concomitant]
     Indication: GASTROOESOPHAGEAL REFLUX DISEASE
  7. Q 10 [Concomitant]
     Indication: PRODUCT USED FOR UNKNOWN INDICATION
  8. ZETIA [Concomitant]
     Indication: BLOOD CHOLESTEROL INCREASED
  9. METOPROLOL TARTRATE [Concomitant]
     Indication: HYPERTENSION
  10. AVODART [Concomitant]
     Indication: BENIGN PROSTATIC HYPERPLASIA
  11. LISINOPRIL [Concomitant]
     Indication: HYPERTENSION
  12. ASPIRIN [Concomitant]
     Indication: PROPHYLAXIS
  13. ISOSORBIDE DINITRATE [Concomitant]
     Indication: STENT PLACEMENT
  14. ASPIRIN [Concomitant]
     Indication: FLUSHING
  15. NIASPAN [Suspect]
     Indication: HIGH DENSITY LIPOPROTEIN DECREASED
     Dates: start: 20101101

REACTIONS (4)
  - EYE IRRITATION [None]
  - PRURITUS [None]
  - PAIN IN EXTREMITY [None]
  - FLUSHING [None]
